FAERS Safety Report 6291086-0 (Version None)
Quarter: 2009Q3

REPORT INFORMATION
  Report Type: 
  Country: None (occurrence: None)
  Receive Date: 20090730
  Receipt Date: 20090721
  Transmission Date: 20100115
  Serious: Yes (Hospitalization, Disabling)
  Sender: FDA-Public Use
  Company Number: A0787476A

PATIENT
  Age: 55 Year
  Sex: Female

DRUGS (1)
  1. AVANDIA [Suspect]
     Indication: DIABETES MELLITUS
     Dosage: 4MG TWICE PER DAY
     Route: 048
     Dates: start: 20000101, end: 20031201

REACTIONS (5)
  - CORONARY ARTERY BYPASS [None]
  - HEART INJURY [None]
  - PULMONARY HYPERTENSION [None]
  - RIGHT VENTRICULAR DYSFUNCTION [None]
  - THROMBOSIS [None]
